FAERS Safety Report 7233631-4 (Version None)
Quarter: 2011Q1

REPORT INFORMATION
  Report Type: 
  Country: None (occurrence: None)
  Receive Date: 20110119
  Receipt Date: 20110114
  Transmission Date: 20110831
  Serious: Yes (Other)
  Sender: FDA-Public Use
  Company Number: IT-MERCK-1012ITA00181

PATIENT
  Age: 78 Year
  Sex: Male

DRUGS (6)
  1. NIFEDIPINE [Concomitant]
     Route: 048
     Dates: start: 20091112
  2. SINEMET [Suspect]
     Route: 048
     Dates: start: 20101112
  3. CITALOPRAM [Concomitant]
     Route: 065
     Dates: start: 20091112
  4. ASPIRIN [Concomitant]
     Route: 048
     Dates: start: 20091112
  5. HYDROCHLOROTHIAZIDE AND LISINOPRIL [Concomitant]
     Route: 065
     Dates: start: 20101112
  6. TIOTROPIUM BROMIDE [Concomitant]
     Route: 048
     Dates: start: 20091112

REACTIONS (4)
  - PAIN IN EXTREMITY [None]
  - DYSKINESIA [None]
  - DYSPNOEA [None]
  - TREMOR [None]
